FAERS Safety Report 21613298 (Version 3)
Quarter: 2023Q1

REPORT INFORMATION
  Report Type: Spontaneous
  Country: DE (occurrence: DE)
  Receive Date: 20221118
  Receipt Date: 20230204
  Transmission Date: 20230417
  Serious: Yes (Life-Threatening, Other)
  Sender: FDA-Public Use
  Company Number: DE-BRISTOL-MYERS SQUIBB COMPANY-BMS-2021-057476

PATIENT
  Age: 60 Year
  Sex: Male

DRUGS (3)
  1. CARBOPLATIN [Suspect]
     Active Substance: CARBOPLATIN
     Indication: Non-small cell lung cancer
     Dosage: 465MG (EVERY 22 DAYS)
     Route: 042
     Dates: start: 20210528, end: 20210622
  2. OPDIVO [Suspect]
     Active Substance: NIVOLUMAB
     Indication: Non-small cell lung cancer
     Dosage: 360 MILLIGRAM, EVERY 22 DAYS
     Route: 042
     Dates: start: 20210528, end: 20210728
  3. YERVOY [Suspect]
     Active Substance: IPILIMUMAB
     Indication: Non-small cell lung cancer
     Dosage: 75 MILLIGRAM EVERY 43 DAYS
     Route: 042
     Dates: start: 20210528, end: 20210728

REACTIONS (3)
  - Immune-mediated lung disease [Not Recovered/Not Resolved]
  - Dermatitis allergic [Unknown]
  - Off label use [Unknown]

NARRATIVE: CASE EVENT DATE: 20210528
